FAERS Safety Report 10394210 (Version 1)
Quarter: 2014Q3

REPORT INFORMATION
  Report Type: Spontaneous
  Country: FR (occurrence: FR)
  Receive Date: 20140819
  Receipt Date: 20140819
  Transmission Date: 20150326
  Serious: Yes (Hospitalization)
  Sender: FDA-Public Use
  Company Number: FR-ASTRAZENECA-2014SE61095

PATIENT
  Sex: Male

DRUGS (10)
  1. BRISTOPEN [Concomitant]
     Active Substance: OXACILLIN SODIUM
     Route: 048
     Dates: start: 20140702, end: 20140707
  2. BRISTOPEN [Concomitant]
     Active Substance: OXACILLIN SODIUM
     Route: 048
     Dates: start: 20140707
  3. BRISTOPEN [Concomitant]
     Active Substance: OXACILLIN SODIUM
     Route: 048
     Dates: start: 20140701, end: 20140702
  4. TAVANIC [Concomitant]
     Active Substance: LEVOFLOXACIN
     Indication: ENDOCARDITIS
     Route: 048
     Dates: start: 20140707
  5. OXYCONTIN [Concomitant]
     Active Substance: OXYCODONE HYDROCHLORIDE
     Route: 048
     Dates: start: 20140717
  6. INEXIUM [Suspect]
     Active Substance: ESOMEPRAZOLE
     Route: 048
     Dates: end: 20140725
  7. ISOPTINE SR [Concomitant]
     Active Substance: VERAPAMIL HYDROCHLORIDE
     Route: 048
     Dates: start: 20140717
  8. TAVANIC [Concomitant]
     Active Substance: LEVOFLOXACIN
     Indication: ENDOCARDITIS
     Route: 048
     Dates: start: 20140702, end: 20140707
  9. FORTIMEL [Concomitant]
     Active Substance: DIETARY SUPPLEMENT
     Dosage: TWO TIMES A DAY
     Dates: start: 20140717
  10. OXYNORM [Concomitant]
     Active Substance: OXYCODONE HYDROCHLORIDE
     Dosage: 5 MG INTERMITTENT UP TO FOUR DF PER DAY
     Dates: start: 20140717

REACTIONS (3)
  - Endocarditis staphylococcal [Unknown]
  - Septic arthritis staphylococcal [Unknown]
  - Thrombocytopenia [Recovered/Resolved]

NARRATIVE: CASE EVENT DATE: 20140725
